FAERS Safety Report 6518500-7 (Version None)
Quarter: 2009Q4

REPORT INFORMATION
  Report Type: 
  Country: None (occurrence: None)
  Receive Date: 20091226
  Receipt Date: 20091216
  Transmission Date: 20100525
  Serious: Yes (Hospitalization, Other)
  Sender: FDA-Public Use
  Company Number: US-JNJFOC-20091006654

PATIENT
  Sex: Male
  Weight: 72.58 kg

DRUGS (3)
  1. RISPERDAL [Suspect]
     Indication: SCHIZOPHRENIA
     Dosage: ONE AT BEDTIME
     Route: 048
  2. RISPERDAL [Suspect]
     Route: 048
  3. ZOLOFT [Suspect]
     Indication: DEPRESSION
     Route: 048

REACTIONS (5)
  - DIZZINESS [None]
  - DRUG INEFFECTIVE [None]
  - FALL [None]
  - MALAISE [None]
  - SPINAL FRACTURE [None]
